FAERS Safety Report 14021954 (Version 2)
Quarter: 2017Q4

REPORT INFORMATION
  Report Type: Spontaneous
  Country: US (occurrence: US)
  Receive Date: 20170928
  Receipt Date: 20171106
  Transmission Date: 20180321
  Serious: No
  Sender: FDA-Public Use
  Company Number: US-ELI_LILLY_AND_COMPANY-US201709010860

PATIENT
  Sex: Male
  Weight: 96.15 kg

DRUGS (1)
  1. TRULICITY [Suspect]
     Active Substance: DULAGLUTIDE
     Indication: TYPE 2 DIABETES MELLITUS
     Dosage: 1.5 MG, WEEKLY (1/W)
     Route: 058
     Dates: start: 20170512, end: 20170616

REACTIONS (4)
  - Abdominal distension [Recovering/Resolving]
  - Thyroid cyst [Recovered/Resolved]
  - Abdominal pain [Recovering/Resolving]
  - Feeding disorder [Recovering/Resolving]
